FAERS Safety Report 24007125 (Version 1)
Quarter: 2024Q2

REPORT INFORMATION
  Report Type: Report from Study
  Country: US (occurrence: US)
  Receive Date: 20240624
  Receipt Date: 20240624
  Transmission Date: 20240716
  Serious: Yes (Other)
  Sender: FDA-Public Use
  Company Number: US-GUERBET / LLC-US-20240099

PATIENT
  Age: 68 Year
  Sex: Female

DRUGS (2)
  1. LIPIODOL [Suspect]
     Active Substance: ETHIODIZED OIL
     Indication: Therapeutic embolisation
     Dosage: LIPIODOL MIXED WITH N-BUTYL CYANOACRYLATE AT RATIO OF 1:3.
     Route: 013
  2. ENBUCRILATE [Suspect]
     Active Substance: ENBUCRILATE
     Indication: Therapeutic embolisation
     Dosage: LIPIODOL MIXED WITH N-BUTYL CYANOACRYLATE AT RATIO OF 1:3.
     Route: 013

REACTIONS (2)
  - Wound infection [Unknown]
  - Product use in unapproved indication [Unknown]
